FAERS Safety Report 8920045 (Version 1)
Quarter: 2012Q4

REPORT INFORMATION
  Report Type: 
  Country: BR (occurrence: US)
  Receive Date: 20121121
  Receipt Date: 20121121
  Transmission Date: 20130627
  Serious: No
  Sender: FDA-Public Use
  Company Number: US-BRISTOL-MYERS SQUIBB COMPANY-16612848

PATIENT
  Sex: Female

DRUGS (1)
  1. APROZIDE [Suspect]
     Dosage: 1DF= 150/12.5mg tabs
28Tabs

REACTIONS (2)
  - Feeling abnormal [Unknown]
  - Blood pressure decreased [Unknown]
